FAERS Safety Report 4596275-9 (Version None)
Quarter: 2005Q1

REPORT INFORMATION
  Report Type: 
  Country: None (occurrence: None)
  Receive Date: 20050225
  Receipt Date: 20030415
  Transmission Date: 20050727
  Serious: Yes (Hospitalization)
  Sender: FDA-Public Use
  Company Number: 2003AP01652

PATIENT
  Age: 89 Year
  Sex: Male

DRUGS (9)
  1. METOPROLOL [Suspect]
     Dosage: 25 MG BID PO
     Route: 048
  2. ASPIRIN [Concomitant]
  3. ISOSORBIDE MONONITRATE [Concomitant]
  4. NITROGLYCERIN [Concomitant]
  5. CELECOXIB [Concomitant]
  6. THYROXINE SODIUM [Concomitant]
  7. RANITIDINE [Concomitant]
  8. AMIODARONE [Concomitant]
  9. ENOXAPARIN SODIUM [Concomitant]

REACTIONS (11)
  - AGITATION [None]
  - BLOOD PRESSURE INCREASED [None]
  - CEREBRAL ATROPHY [None]
  - CONFUSIONAL STATE [None]
  - DELIRIUM [None]
  - DISORIENTATION [None]
  - HALLUCINATION, VISUAL [None]
  - INCOHERENT [None]
  - INSOMNIA [None]
  - REFUSAL OF TREATMENT BY PATIENT [None]
  - SINUS BRADYCARDIA [None]
